FAERS Safety Report 20069454 (Version 1)
Quarter: 2021Q4

REPORT INFORMATION
  Report Type: Spontaneous
  Country: US (occurrence: None)
  Receive Date: 20211113
  Receipt Date: 20211113
  Transmission Date: 20220303
  Serious: Yes (Life-Threatening, Hospitalization)
  Sender: FDA-Public Use
  Company Number: None

PATIENT
  Age: 5 Month
  Sex: Male
  Weight: 98.1 kg

DRUGS (22)
  1. BELATACEPT [Suspect]
     Active Substance: BELATACEPT
     Indication: Lung transplant
     Dosage: OTHER FREQUENCY : Q14D X6, THEN QMO;?
     Route: 040
  2. DARBEPOETIN ALFA [Concomitant]
     Active Substance: DARBEPOETIN ALFA
  3. DICLOFENAC [Concomitant]
     Active Substance: DICLOFENAC
  4. ENOXAPARIN [Concomitant]
     Active Substance: ENOXAPARIN
  5. ESCITALOPRAM [Concomitant]
     Active Substance: ESCITALOPRAM OXALATE
  6. FERROUS SULFATE [Concomitant]
     Active Substance: FERROUS SULFATE
  7. FOLIC ACID [Concomitant]
     Active Substance: FOLIC ACID
  8. Hydrocortisone 20 BID [Concomitant]
  9. INSULIN ASPART [Concomitant]
     Active Substance: INSULIN ASPART
  10. INSULIN GLARGINE [Concomitant]
     Active Substance: INSULIN GLARGINE
  11. ELBASVIR\GRAZOPREVIR [Concomitant]
     Active Substance: ELBASVIR\GRAZOPREVIR
  12. LANSOPRAZOLE [Concomitant]
     Active Substance: LANSOPRAZOLE
  13. MELATONIN [Concomitant]
     Active Substance: MELATONIN
  14. MIDODRINE [Concomitant]
     Active Substance: MIDODRINE
  15. Mycophenolic acid 720 BID [Concomitant]
  16. ONDANSETRON [Concomitant]
     Active Substance: ONDANSETRON
  17. PATIROMER [Concomitant]
     Active Substance: PATIROMER
  18. Sodium bicarobonate [Concomitant]
  19. SULFAMETHOXAZOLE\TRIMETHOPRIM [Concomitant]
     Active Substance: SULFAMETHOXAZOLE\TRIMETHOPRIM
  20. TRAMADOL [Concomitant]
     Active Substance: TRAMADOL
  21. TRAZODONE [Concomitant]
     Active Substance: TRAZODONE HYDROCHLORIDE
  22. Valganciclovir, voriconazole [Concomitant]

REACTIONS (4)
  - Acute kidney injury [None]
  - Chronic kidney disease [None]
  - Acute respiratory failure [None]
  - Lung transplant rejection [None]

NARRATIVE: CASE EVENT DATE: 20200717
